FAERS Safety Report 9650837 (Version 1)
Quarter: 2013Q4

REPORT INFORMATION
  Report Type: Spontaneous
  Country: US (occurrence: None)
  Receive Date: 20131028
  Receipt Date: 20131028
  Transmission Date: 20140711
  Serious: No
  Sender: FDA-Public Use
  Company Number: None

PATIENT
  Age: 60 None
  Sex: Male

DRUGS (1)
  1. JAKAFI [Suspect]
     Indication: PRODUCT USED FOR UNKNOWN INDICATION
     Route: 048
     Dates: start: 20130124

REACTIONS (5)
  - Dysphonia [None]
  - Gastrooesophageal reflux disease [None]
  - Blindness transient [None]
  - Gait disturbance [None]
  - Fall [None]
